FAERS Safety Report 22290712 (Version 3)
Quarter: 2025Q3

REPORT INFORMATION
  Report Type: Spontaneous
  Country: GB (occurrence: GB)
  Receive Date: 20230505
  Receipt Date: 20250722
  Transmission Date: 20251020
  Serious: Yes (Hospitalization, Disabling, Other)
  Sender: PURDUE
  Company Number: GB-MHRA-WEBCOVID-202105141256421920-V7PBT

PATIENT
  Age: 70 Year
  Sex: Female
  Weight: 67 kg

DRUGS (15)
  1. MORPHINE SULFATE [Suspect]
     Active Substance: MORPHINE SULFATE
     Indication: Neuralgia
     Route: 065
  2. PFIZER-BIONTECH COVID-19 VACCINE [Suspect]
     Active Substance: TOZINAMERAN
     Indication: COVID-19 immunisation
     Route: 065
     Dates: start: 20210213, end: 20210213
  3. ASTRAZENECA COVID-19 VACCINE [Suspect]
     Active Substance: AZD-1222
     Indication: COVID-19 immunisation
     Route: 065
     Dates: start: 20210428, end: 20210428
  4. PREGABALIN [Suspect]
     Active Substance: PREGABALIN
     Indication: Neuralgia
     Route: 065
  5. AMITRIPTYLINE [Concomitant]
     Active Substance: AMITRIPTYLINE
     Indication: Migraine
     Route: 065
  6. ATORVASTATIN [Concomitant]
     Active Substance: ATORVASTATIN
     Indication: Blood cholesterol increased
     Route: 065
  7. BISOPROLOL [Concomitant]
     Active Substance: BISOPROLOL
     Indication: Hypertension
     Route: 065
  8. BISOPROLOL FUMARATE [Concomitant]
     Active Substance: BISOPROLOL FUMARATE
     Indication: Hypertension
     Route: 065
  9. CANDESARTAN [Concomitant]
     Active Substance: CANDESARTAN
     Indication: Hypertension
     Route: 065
  10. DIAZEPAM [Concomitant]
     Active Substance: DIAZEPAM
     Indication: Muscle spasms
     Route: 065
  11. FELODIPINE [Concomitant]
     Active Substance: FELODIPINE
     Indication: Hypertension
     Route: 065
  12. IBUPROFEN [Concomitant]
     Active Substance: IBUPROFEN
     Indication: Neuralgia
     Route: 065
  13. NAPROXEN [Concomitant]
     Active Substance: NAPROXEN
     Indication: Osteoarthritis
     Route: 065
  14. OMEPRAZOLE [Concomitant]
     Active Substance: OMEPRAZOLE
     Indication: Reflux gastritis
     Route: 065
  15. OXYCODONE HYDROCHLORIDE [Concomitant]
     Active Substance: OXYCODONE HYDROCHLORIDE
     Indication: Neuralgia
     Route: 065

REACTIONS (85)
  - Glossitis [Not Recovered/Not Resolved]
  - Muscle spasms [Unknown]
  - Exophthalmos [Not Recovered/Not Resolved]
  - Groin pain [Unknown]
  - Glossodynia [Unknown]
  - Ear pain [Unknown]
  - Pain in extremity [Not Recovered/Not Resolved]
  - Back pain [Not Recovered/Not Resolved]
  - Tongue erythema [Unknown]
  - Lymphadenopathy [Not Recovered/Not Resolved]
  - Musculoskeletal stiffness [Unknown]
  - Nausea [Unknown]
  - Fatigue [Not Recovered/Not Resolved]
  - Neuralgia [Not Recovered/Not Resolved]
  - Headache [Not Recovered/Not Resolved]
  - Arthralgia [Not Recovered/Not Resolved]
  - Pain [Unknown]
  - Electric shock sensation [Unknown]
  - Eye pain [Not Recovered/Not Resolved]
  - Abdominal pain [Unknown]
  - Urinary retention [Unknown]
  - Hypersomnia [Unknown]
  - Dizziness [Unknown]
  - Paraesthesia [Unknown]
  - Pollakiuria [Recovering/Resolving]
  - Chest pain [Unknown]
  - Hair growth abnormal [Recovered/Resolved]
  - Nail growth abnormal [Recovered/Resolved]
  - Onychoclasis [Unknown]
  - Nail deformation [Unknown]
  - Joint stiffness [Unknown]
  - Bone pain [Unknown]
  - Clumsiness [Unknown]
  - Disturbance in attention [Unknown]
  - Feeling hot [Unknown]
  - Dysphagia [Unknown]
  - Haemorrhage [Unknown]
  - Greater trochanteric pain syndrome [Unknown]
  - Oropharyngeal discolouration [Unknown]
  - Eye infection [Unknown]
  - Feeling cold [Unknown]
  - Pharyngitis [Unknown]
  - Blepharospasm [Not Recovered/Not Resolved]
  - Vaccination site swelling [Recovered/Resolved]
  - Decreased appetite [Unknown]
  - Constipation [Recovered/Resolved]
  - Brain fog [Unknown]
  - Memory impairment [Unknown]
  - Anxiety [Unknown]
  - Confusional state [Unknown]
  - Nightmare [Unknown]
  - Palpitations [Unknown]
  - Pelvic misalignment [Unknown]
  - Abnormal loss of weight [Unknown]
  - Dysgraphia [Unknown]
  - Heart rate increased [Unknown]
  - Lip discolouration [Unknown]
  - Skin discolouration [Unknown]
  - Nerve compression [Unknown]
  - Incontinence [Unknown]
  - Chromaturia [Unknown]
  - Urine odour abnormal [Unknown]
  - Ovarian mass [Unknown]
  - Balance disorder [Unknown]
  - Hiccups [Unknown]
  - Oropharyngeal pain [Recovering/Resolving]
  - Throat irritation [Recovering/Resolving]
  - Rash [Unknown]
  - Seizure [Unknown]
  - Hypertension [Unknown]
  - Hypersensitivity [Unknown]
  - Sensory disturbance [Unknown]
  - Lymphadenopathy [Unknown]
  - Lymph node pain [Unknown]
  - Fatigue [Unknown]
  - Dizziness [Unknown]
  - Mouth haemorrhage [Unknown]
  - Muscle spasms [Unknown]
  - Osteoarthritis [Unknown]
  - Dyspnoea [Unknown]
  - Hot flush [Unknown]
  - Dysuria [Unknown]
  - Bowel movement irregularity [Unknown]
  - Bursitis [Unknown]
  - Psoriasis [Unknown]

NARRATIVE: CASE EVENT DATE: 20210213
